FAERS Safety Report 7327763-X (Version None)
Quarter: 2011Q1

REPORT INFORMATION
  Report Type: 
  Country: None (occurrence: None)
  Receive Date: 20110303
  Receipt Date: 20110222
  Transmission Date: 20110831
  Serious: Yes (Hospitalization)
  Sender: FDA-Public Use
  Company Number: BR-US-EMD SERONO, INC.-7043477

PATIENT
  Sex: Female

DRUGS (7)
  1. REBIF [Suspect]
     Indication: PRIMARY PROGRESSIVE MULTIPLE SCLEROSIS
     Dates: start: 20101201
  2. CODEINE SUL TAB [Concomitant]
  3. DONAREN [Concomitant]
  4. CLONAZEPAM [Concomitant]
  5. SERTRALINE [Concomitant]
  6. FLUOXETINE [Concomitant]
  7. ANTIPLAN [Concomitant]

REACTIONS (13)
  - HEADACHE [None]
  - HYPOAESTHESIA [None]
  - MUSCULAR WEAKNESS [None]
  - PAIN IN EXTREMITY [None]
  - OFF LABEL USE [None]
  - FIBROMYALGIA [None]
  - CHILLS [None]
  - GAIT DISTURBANCE [None]
  - LOSS OF CONTROL OF LEGS [None]
  - MUSCLE SPASMS [None]
  - EAR DISCOMFORT [None]
  - DYSACUSIS [None]
  - COLD SWEAT [None]
